FAERS Safety Report 5006608-7 (Version None)
Quarter: 2006Q2

REPORT INFORMATION
  Report Type: 
  Country: None (occurrence: None)
  Receive Date: 20060519
  Receipt Date: 20060403
  Transmission Date: 20061013
  Serious: No
  Sender: FDA-Public Use
  Company Number: GB-GLAXOSMITHKLINE-B0419105A

PATIENT
  Age: 68 Year
  Sex: Male

DRUGS (7)
  1. AMOXICILLIN [Suspect]
     Indication: LOWER RESPIRATORY TRACT INFECTION
     Dosage: 500MG PER DAY
     Route: 048
     Dates: start: 20060222, end: 20060227
  2. WARFARIN SODIUM [Concomitant]
     Indication: DEEP VEIN THROMBOSIS
     Route: 048
     Dates: start: 19970101
  3. OMEPRAZOLE [Concomitant]
     Dosage: 20MG PER DAY
     Route: 048
     Dates: start: 20030101
  4. LISINOPRIL [Concomitant]
     Indication: HYPERTENSION
     Dosage: 20MG PER DAY
     Route: 048
     Dates: start: 20030101
  5. SALBUTAMOL [Concomitant]
     Indication: ASTHMA
     Route: 055
  6. BENDROFLUMETHIAZIDE [Concomitant]
     Indication: HYPERTENSION
     Dosage: 2.5MG PER DAY
     Route: 065
     Dates: start: 20010101
  7. OXIS [Concomitant]
     Indication: ASTHMA
     Dosage: 12MCG PER DAY
     Route: 065
     Dates: start: 20000801

REACTIONS (2)
  - BLOOD CREATINE PHOSPHOKINASE INCREASED [None]
  - BUTTOCK PAIN [None]
